FAERS Safety Report 16567761 (Version 1)
Quarter: 2019Q3

REPORT INFORMATION
  Report Type: Spontaneous
  Country: FR (occurrence: FR)
  Receive Date: 20190712
  Receipt Date: 20190712
  Transmission Date: 20191004
  Serious: Yes (Hospitalization)
  Sender: FDA-Public Use
  Company Number: PHHY2019FR158788

PATIENT
  Age: 55 Year
  Sex: Male
  Weight: 85 kg

DRUGS (15)
  1. LEVETIRACETAM MYLAN [Suspect]
     Active Substance: LEVETIRACETAM
     Indication: EPILEPSY
     Dosage: 4 G, QD
     Route: 040
     Dates: start: 20190505, end: 20190505
  2. PANTOPRAZOLE [Concomitant]
     Active Substance: PANTOPRAZOLE
     Indication: PRODUCT USED FOR UNKNOWN INDICATION
     Dosage: UNK
     Route: 042
  3. GENTAMICINE [Suspect]
     Active Substance: GENTAMICIN
     Indication: PNEUMONIA ASPIRATION
     Dosage: 600 MG, QD
     Route: 042
     Dates: start: 20190506, end: 20190506
  4. RIVOTRIL [Suspect]
     Active Substance: CLONAZEPAM
     Indication: PRODUCT USED FOR UNKNOWN INDICATION
     Dosage: UNK
     Route: 040
  5. LEVETIRACETAM MYLAN [Suspect]
     Active Substance: LEVETIRACETAM
     Dosage: 3 G, QD
     Route: 041
     Dates: start: 20190505, end: 20190507
  6. SUFENTANIL [Suspect]
     Active Substance: SUFENTANIL
     Indication: SEDATION
     Dosage: UNK
     Route: 042
  7. PROPOFOL. [Suspect]
     Active Substance: PROPOFOL
     Indication: SEDATION
     Dosage: UNK
     Route: 042
  8. VALIUM [Suspect]
     Active Substance: DIAZEPAM
     Indication: STATUS EPILEPTICUS
     Dosage: 10 MG, QD
     Route: 042
     Dates: start: 20190505, end: 20190505
  9. AUGMENTIN [Suspect]
     Active Substance: AMOXICILLIN\CLAVULANATE POTASSIUM
     Indication: PNEUMONIA ASPIRATION
     Dosage: 6 G, QD
     Route: 042
     Dates: start: 20190506, end: 20190507
  10. NORADRENALINE [Suspect]
     Active Substance: NOREPINEPHRINE
     Indication: PRODUCT USED FOR UNKNOWN INDICATION
     Dosage: UNK
     Route: 042
  11. PARACETAMOL [Concomitant]
     Active Substance: ACETAMINOPHEN
     Indication: PRODUCT USED FOR UNKNOWN INDICATION
     Dosage: UNK
     Route: 042
  12. SEROPLEX [Concomitant]
     Active Substance: ESCITALOPRAM OXALATE
     Indication: DEPRESSION
     Dosage: 10 MG, QD
     Route: 048
  13. VANCOMYCIN [Suspect]
     Active Substance: VANCOMYCIN
     Indication: PRODUCT USED FOR UNKNOWN INDICATION
     Dosage: UNK
     Route: 042
  14. CISATRACURIUM. [Suspect]
     Active Substance: CISATRACURIUM
     Indication: SEDATION
     Dosage: UNK
     Route: 042
  15. LAMICTAL [Concomitant]
     Active Substance: LAMOTRIGINE
     Indication: EPILEPSY
     Dosage: 100 MG, QD
     Route: 048

REACTIONS (1)
  - Hepatocellular injury [Recovered/Resolved]

NARRATIVE: CASE EVENT DATE: 20190505
